FAERS Safety Report 14802532 (Version 2)
Quarter: 2018Q2

REPORT INFORMATION
  Report Type: Spontaneous
  Country: NO (occurrence: NO)
  Receive Date: 20180424
  Receipt Date: 20180504
  Transmission Date: 20180711
  Serious: Yes (Other)
  Sender: FDA-Public Use
  Company Number: NO-NOVOPROD-596714

PATIENT
  Age: 39 Year
  Sex: Female
  Weight: 95 kg

DRUGS (1)
  1. FIASP [Suspect]
     Active Substance: INSULIN ASPART
     Indication: TYPE 1 DIABETES MELLITUS
     Dosage: UNK FIXED/SOLID BASAL DOSAGE PLUS BOLUS WHEN NEEDED. AVERAGE APPROX 65 U PER DAY
     Route: 058
     Dates: start: 20170130, end: 20180224

REACTIONS (6)
  - Injection site swelling [Recovered/Resolved]
  - Drug ineffective [Unknown]
  - Injection site inflammation [Recovered/Resolved]
  - Infusion site pruritus [Recovered/Resolved]
  - Ketoacidosis [Recovered/Resolved]
  - Injection site pain [Recovered/Resolved]

NARRATIVE: CASE EVENT DATE: 20171222
